FAERS Safety Report 10155507 (Version 1)
Quarter: 2014Q2

REPORT INFORMATION
  Report Type: Spontaneous
  Country: FR (occurrence: FR)
  Receive Date: 20140506
  Receipt Date: 20140506
  Transmission Date: 20141212
  Serious: Yes (Other)
  Sender: FDA-Public Use
  Company Number: FR-ASTRAZENECA-2014SE29270

PATIENT
  Age: 39 Year
  Sex: Male

DRUGS (12)
  1. SYMBICORT TURBUHALER [Suspect]
     Indication: ASTHMA
     Route: 055
     Dates: start: 200910, end: 2010
  2. SYMBICORT TURBUHALER [Interacting]
     Indication: ASTHMA
     Dosage: NINE INHALATIONS PER DAY
     Route: 055
     Dates: start: 20110106
  3. NORVIR [Interacting]
     Indication: HIV INFECTION
     Route: 048
     Dates: start: 20070515, end: 20140305
  4. TRUVADA [Concomitant]
     Indication: HIV INFECTION
     Dosage: 200/245 MG ONE DF PER DAY
     Route: 048
     Dates: start: 20070515
  5. REYATAZ [Concomitant]
     Indication: HIV INFECTION
     Route: 048
     Dates: start: 20070515
  6. ADROVANCE [Concomitant]
     Route: 048
     Dates: start: 201308
  7. VENTOLINE [Concomitant]
     Dates: start: 2009
  8. BRONCHODUAL [Concomitant]
     Dates: start: 201007
  9. UVEDOSE [Concomitant]
     Route: 048
     Dates: start: 201303
  10. CRESTOR [Concomitant]
     Route: 048
     Dates: start: 200910
  11. DEPAMIDE [Concomitant]
     Dosage: 300 MG FIVE TABLETS PER DAY
     Route: 048
     Dates: start: 2008
  12. SOLIAN [Concomitant]
     Dosage: 400 MG ONE AND HALF TABLET PER DAY
     Route: 048
     Dates: start: 2010

REACTIONS (5)
  - Drug interaction [Unknown]
  - Cushing^s syndrome [Not Recovered/Not Resolved]
  - Blood cortisol decreased [Not Recovered/Not Resolved]
  - Treatment noncompliance [Unknown]
  - Intentional product misuse [Unknown]
